FAERS Safety Report 7754455-5 (Version None)
Quarter: 2011Q3

REPORT INFORMATION
  Report Type: 
  Country: None (occurrence: None)
  Receive Date: 20110915
  Receipt Date: 20110906
  Transmission Date: 20111222
  Serious: Yes (Hospitalization, Other)
  Sender: FDA-Public Use
  Company Number: US-UCBSA-035444

PATIENT
  Sex: Female

DRUGS (7)
  1. VIMPAT [Suspect]
     Indication: PARTIAL SEIZURES
     Dosage: ON VIMPAT 400MG FOR ABOUT SIX MONTHS PRIOR TO HOSPITALIZATION, REDUCED FROM 400MG/ DAY TO 200MG/DAY
     Dates: start: 20100729
  2. CORTIF [Concomitant]
  3. KEPPRA [Suspect]
  4. AMITRIPTYLINE HCL [Concomitant]
     Dosage: QHS
  5. THORAZINE [Suspect]
     Indication: HICCUPS
     Dosage: QHS
  6. ONDANSETRON [Concomitant]
     Indication: NAUSEA
  7. GROWTH HORMONE [Concomitant]

REACTIONS (2)
  - VENTRICULAR EXTRASYSTOLES [None]
  - VAGAL NERVE STIMULATOR IMPLANTATION [None]
